FAERS Safety Report 7512116-1 (Version None)
Quarter: 2011Q2

REPORT INFORMATION
  Report Type: 
  Country: None (occurrence: None)
  Receive Date: 20110520
  Receipt Date: 20110505
  Transmission Date: 20111010
  Serious: Yes (Hospitalization, Disabling)
  Sender: FDA-Public Use
  Company Number: AUR-APL-2011-01660

PATIENT
  Sex: Female

DRUGS (3)
  1. CALCICHEW-D3 [Concomitant]
  2. ALENDRONATE SODIUM [Suspect]
     Indication: OSTEOPOROSIS
     Dosage: 70MG -ORAL
     Route: 048
     Dates: start: 20061017
  3. DOMPERIDONE [Concomitant]

REACTIONS (1)
  - FEMUR FRACTURE [None]
